FAERS Safety Report 16124543 (Version 1)
Quarter: 2019Q1

REPORT INFORMATION
  Report Type: Spontaneous
  Country: CN (occurrence: CN)
  Receive Date: 20190327
  Receipt Date: 20190327
  Transmission Date: 20190418
  Serious: Yes (Life-Threatening, Other)
  Sender: FDA-Public Use
  Company Number: CN-PFIZER INC-2019128689

PATIENT
  Age: 64 Year
  Sex: Male
  Weight: 60 kg

DRUGS (1)
  1. CEFOPERAZONE SODIUM [Suspect]
     Active Substance: CEFOPERAZONE SODIUM
     Indication: PNEUMONITIS
     Dosage: 2 G, TWICE DAILY
     Route: 041
     Dates: start: 20190113, end: 20190115

REACTIONS (2)
  - Shock [Recovering/Resolving]
  - Alcohol intolerance [Recovering/Resolving]

NARRATIVE: CASE EVENT DATE: 20190115
